FAERS Safety Report 25660829 (Version 2)
Quarter: 2025Q3

REPORT INFORMATION
  Report Type: Spontaneous
  Country: EU (occurrence: EU)
  Receive Date: 20250808
  Receipt Date: 20250818
  Transmission Date: 20251021
  Serious: Yes (Hospitalization, Other)
  Sender: SANOFI AVENTIS
  Company Number: EU-DialogSolutions-SAAVPROD-PI808376-C1

PATIENT
  Age: 25 Year
  Sex: Female

DRUGS (7)
  1. INSULIN ASPART [Suspect]
     Active Substance: INSULIN ASPART
     Indication: Hyperglycaemia
  2. INSULIN ASPART [Suspect]
     Active Substance: INSULIN ASPART
  3. PREDNISONE [Suspect]
     Active Substance: PREDNISONE
     Indication: Insulin autoimmune syndrome
     Dosage: 25 MG, QD
  4. PREDNISONE [Suspect]
     Active Substance: PREDNISONE
     Dosage: 6.25 MG, Q3D
  5. ALPHA LIPOIC ACID [Suspect]
     Active Substance: .ALPHA.-LIPOIC ACID
     Indication: Supplementation therapy
     Dosage: 600 MG, BID
  6. DEXTROSE [Suspect]
     Active Substance: DEXTROSE MONOHYDRATE
     Indication: Hypoglycaemia
     Route: 042
  7. DEXTROSE [Suspect]
     Active Substance: DEXTROSE MONOHYDRATE
     Indication: Hypoglycaemia
     Dosage: UNK UNK, QH, INTRAVENOUS GLUCOSE INFUSION, UP TO 83 ML/H OF DEXTROSE 10%
     Route: 042

REACTIONS (3)
  - Polyhydramnios [Recovered/Resolved]
  - Hyperglycaemia [Recovered/Resolved]
  - Exposure during pregnancy [Unknown]
